FAERS Safety Report 7247392-6 (Version None)
Quarter: 2011Q1

REPORT INFORMATION
  Report Type: 
  Country: None (occurrence: None)
  Receive Date: 20110127
  Receipt Date: 20110118
  Transmission Date: 20110831
  Serious: Yes (Other)
  Sender: FDA-Public Use
  Company Number: PHHY2011IT04072

PATIENT
  Age: 64 Year
  Sex: Female

DRUGS (5)
  1. REHYDRATION THERAPY WITH POTASSIUM SUPPLEMENTATION [Concomitant]
  2. FUROSEMIDE [Concomitant]
  3. ZOMETA [Suspect]
     Dosage: 4 MG, DAILY
     Route: 042
  4. METHYLPREDNISOLONE [Concomitant]
  5. CALCITONIN [Concomitant]

REACTIONS (2)
  - HYPOCALCAEMIA [None]
  - HYPERPARATHYROIDISM [None]
